FAERS Safety Report 24142013 (Version 1)
Quarter: 2024Q3

REPORT INFORMATION
  Report Type: Spontaneous
  Country: AT (occurrence: AT)
  Receive Date: 20240726
  Receipt Date: 20240726
  Transmission Date: 20241016
  Serious: Yes (Death)
  Sender: TAIHO ONCOLOGY INC
  Company Number: AT-SERVIER-S24000100

PATIENT
  Age: 53 Year
  Sex: Male
  Weight: 87 kg

DRUGS (1)
  1. LONSURF [Suspect]
     Active Substance: TIPIRACIL HYDROCHLORIDE\TRIFLURIDINE
     Indication: Pancreatic carcinoma metastatic
     Dosage: 105 MG, BID, ON DAYS 1-5 AND 8-12 OF A 28-DAY-CYCLE?THERAPY START DATE- 20-JAN-2024.
     Route: 048
     Dates: end: 20240211

REACTIONS (5)
  - Death [Fatal]
  - Scrotal oedema [Unknown]
  - Off label use [Recovered/Resolved]
  - Tumour marker increased [Recovered/Resolved]
  - Treatment failure [Recovered/Resolved]

NARRATIVE: CASE EVENT DATE: 20240101
